FAERS Safety Report 18811628 (Version 1)
Quarter: 2021Q1

REPORT INFORMATION
  Report Type: Spontaneous
  Country: TZ (occurrence: IN)
  Receive Date: 20210130
  Receipt Date: 20210130
  Transmission Date: 20210419
  Serious: Yes (Hospitalization, Other)
  Sender: FDA-Public Use
  Company Number: TZ-ACCORD-216211

PATIENT
  Age: 54 Year
  Sex: Male

DRUGS (6)
  1. RANITIDINE. [Concomitant]
     Active Substance: RANITIDINE
     Indication: ANAEMIA MEGALOBLASTIC
     Route: 042
  2. ALBENDAZOLE. [Concomitant]
     Active Substance: ALBENDAZOLE
     Indication: ANAEMIA MEGALOBLASTIC
     Route: 048
  3. PARACETAMOL [Concomitant]
     Active Substance: ACETAMINOPHEN
     Indication: ANAEMIA MEGALOBLASTIC
     Route: 030
  4. ASCORBIC ACID/CALCIUM PANTOTHENATE/NICOTINAMIDE/PYRIDOXINE HYDROCHLORIDE/RIBOFLAVIN/THIAMINE HYDROCH [Concomitant]
     Indication: ANAEMIA MEGALOBLASTIC
  5. DOMPERIDONE [Concomitant]
     Active Substance: DOMPERIDONE
     Indication: ANAEMIA MEGALOBLASTIC
  6. CYANOCOBALAMIN. [Suspect]
     Active Substance: CYANOCOBALAMIN
     Indication: ANAEMIA MEGALOBLASTIC
     Route: 030

REACTIONS (1)
  - Arthralgia [Recovering/Resolving]
